FAERS Safety Report 15579794 (Version 1)
Quarter: 2018Q4

REPORT INFORMATION
  Report Type: Spontaneous
  Country: US (occurrence: US)
  Receive Date: 20181102
  Receipt Date: 20181102
  Transmission Date: 20190205
  Serious: Yes (Life-Threatening, Other)
  Sender: FDA-Public Use
  Company Number: None

PATIENT
  Age: 62 Year
  Sex: Female
  Weight: 46.7 kg

DRUGS (9)
  1. ROCURONIUM [Suspect]
     Active Substance: ROCURONIUM BROMIDE
     Indication: ANAESTHESIA
     Dosage: ?          OTHER FREQUENCY:ONCE;?
     Route: 043
     Dates: start: 20181029, end: 20181029
  2. ASPIRIN. [Concomitant]
     Active Substance: ASPIRIN
     Dates: start: 20180101, end: 20181102
  3. IBUPROFEN. [Concomitant]
     Active Substance: IBUPROFEN
     Dates: start: 20180101, end: 20181102
  4. CHOLECALCIFEROL [Concomitant]
     Active Substance: CHOLECALCIFEROL
     Dates: start: 20180101, end: 20181102
  5. CEFAZOLIN [Concomitant]
     Active Substance: CEFAZOLIN
     Dates: start: 20181029, end: 20181029
  6. MIDAZOLAM [Concomitant]
     Active Substance: MIDAZOLAM HYDROCHLORIDE
     Dates: start: 20181029, end: 20181029
  7. FENTANYL. [Concomitant]
     Active Substance: FENTANYL
     Dates: start: 20181029, end: 20181029
  8. LISINOPRIL. [Concomitant]
     Active Substance: LISINOPRIL
     Dates: start: 20180101, end: 20181102
  9. LIDOCAINE. [Concomitant]
     Active Substance: LIDOCAINE
     Dates: start: 20181029, end: 20181029

REACTIONS (2)
  - Bronchospasm [None]
  - Procedural complication [None]

NARRATIVE: CASE EVENT DATE: 20181029
